FAERS Safety Report 6978333-4 (Version None)
Quarter: 2010Q3

REPORT INFORMATION
  Report Type: 
  Country: None (occurrence: None)
  Receive Date: 20100913
  Receipt Date: 20100902
  Transmission Date: 20110219
  Serious: Yes (Other)
  Sender: FDA-Public Use
  Company Number: FI-ASTRAZENECA-2010SE41568

PATIENT
  Age: 30 Year
  Sex: Female

DRUGS (2)
  1. SEROQUEL [Suspect]
     Indication: SCHIZOAFFECTIVE DISORDER
     Dosage: UP TO 800MG PER DAY
     Route: 048
  2. VALPROATE SODIUM [Suspect]
     Indication: SCHIZOAFFECTIVE DISORDER

REACTIONS (2)
  - LEUKOPENIA [None]
  - NEUTROPENIA [None]
